FAERS Safety Report 4992860-0 (Version None)
Quarter: 2006Q2

REPORT INFORMATION
  Report Type: 
  Country: None (occurrence: None)
  Receive Date: 20060504
  Receipt Date: 20051122
  Transmission Date: 20061013
  Serious: Yes (Hospitalization)
  Sender: FDA-Public Use
  Company Number: US-MERCK-0511USA03813

PATIENT
  Age: 67 Year
  Sex: Male
  Weight: 82 kg

DRUGS (3)
  1. VIOXX [Suspect]
     Indication: SHOULDER PAIN
     Route: 048
     Dates: start: 20030106, end: 20040920
  2. VIOXX [Suspect]
     Indication: PAIN
     Route: 048
     Dates: start: 20030106, end: 20040920
  3. BEXTRA [Suspect]
     Route: 048
     Dates: start: 20020419

REACTIONS (19)
  - ABDOMINAL WALL MASS [None]
  - ASTHMA [None]
  - BLOOD PRESSURE INCREASED [None]
  - CAROTID ARTERY STENOSIS [None]
  - CEREBROVASCULAR ACCIDENT [None]
  - CHEST PAIN [None]
  - CHRONIC OBSTRUCTIVE PULMONARY DISEASE [None]
  - DIPLOPIA [None]
  - DRY GANGRENE [None]
  - EMPHYSEMA [None]
  - GASTROOESOPHAGEAL REFLUX DISEASE [None]
  - HIGH DENSITY LIPOPROTEIN DECREASED [None]
  - MONOPARESIS [None]
  - NON-CARDIAC CHEST PAIN [None]
  - OEDEMA [None]
  - OEDEMA PERIPHERAL [None]
  - PAIN IN EXTREMITY [None]
  - PERIPHERAL VASCULAR DISORDER [None]
  - PULMONARY FIBROSIS [None]
